FAERS Safety Report 23580392 (Version 4)
Quarter: 2024Q2

REPORT INFORMATION
  Report Type: Other
  Country: US (occurrence: US)
  Receive Date: 20240229
  Receipt Date: 20240511
  Transmission Date: 20240716
  Serious: No
  Sender: FDA-Public Use
  Company Number: US-TRAVERE-2024TVT00196

PATIENT
  Age: 31 Year
  Sex: Female

DRUGS (2)
  1. FILSPARI [Suspect]
     Active Substance: SPARSENTAN
     Indication: IgA nephropathy
     Route: 048
     Dates: start: 20240224
  2. FILSPARI [Suspect]
     Active Substance: SPARSENTAN
     Route: 048

REACTIONS (9)
  - Dizziness [None]
  - Headache [Unknown]
  - Nausea [None]
  - Musculoskeletal chest pain [Unknown]
  - Dysuria [Unknown]
  - Urine output decreased [Unknown]
  - Decreased appetite [Unknown]
  - Abdominal pain upper [Unknown]
  - Abdominal distension [Unknown]

NARRATIVE: CASE EVENT DATE: 20240224
